FAERS Safety Report 16910997 (Version 1)
Quarter: 2019Q4

REPORT INFORMATION
  Report Type: Spontaneous
  Country: TW (occurrence: TW)
  Receive Date: 20191012
  Receipt Date: 20191012
  Transmission Date: 20200122
  Serious: Yes (Other)
  Sender: FDA-Public Use
  Company Number: TW-ACCORD-156576

PATIENT
  Age: 47 Year
  Sex: Female

DRUGS (2)
  1. CISPLATIN. [Concomitant]
     Active Substance: CISPLATIN
     Indication: OVARIAN CANCER
  2. PACLITAXEL/PACLITAXEL LIPOSOME [Suspect]
     Active Substance: PACLITAXEL
     Indication: OVARIAN CANCER
     Dosage: 4 CYCLES

REACTIONS (6)
  - Nail dystrophy [Recovered/Resolved]
  - Traumatic haematoma [Recovered/Resolved]
  - Nail pigmentation [Recovered/Resolved]
  - Onycholysis [Recovered/Resolved]
  - Paronychia [Recovered/Resolved]
  - Nail ridging [Recovered/Resolved]
